FAERS Safety Report 15886519 (Version 3)
Quarter: 2019Q1

REPORT INFORMATION
  Report Type: Spontaneous
  Country: US (occurrence: US)
  Receive Date: 20190129
  Receipt Date: 20190215
  Transmission Date: 20190417
  Serious: No
  Sender: FDA-Public Use
  Company Number: US-GILEAD-2019-0387337

PATIENT
  Age: 72 Year
  Sex: Female

DRUGS (4)
  1. HARVONI [Suspect]
     Active Substance: LEDIPASVIR\SOFOSBUVIR
     Dosage: UNK
     Route: 065
     Dates: start: 20181231, end: 20190115
  2. HARVONI [Suspect]
     Active Substance: LEDIPASVIR\SOFOSBUVIR
     Dosage: UNK
     Route: 065
     Dates: start: 20190119, end: 20190202
  3. HARVONI [Suspect]
     Active Substance: LEDIPASVIR\SOFOSBUVIR
     Indication: HEPATITIS C
     Dosage: UNK
     Route: 065
     Dates: start: 20181102, end: 20181228
  4. HCTZ [Concomitant]
     Active Substance: HYDROCHLOROTHIAZIDE

REACTIONS (2)
  - Blood urea increased [Unknown]
  - Blood creatinine increased [Unknown]
